FAERS Safety Report 21794351 (Version 1)
Quarter: 2022Q4

REPORT INFORMATION
  Report Type: Spontaneous
  Country: US (occurrence: None)
  Receive Date: 20221228
  Receipt Date: 20221228
  Transmission Date: 20230113
  Serious: Yes (Life-Threatening, Hospitalization, Disabling)
  Sender: FDA-Public Use
  Company Number: None

PATIENT
  Age: 66 Year
  Sex: Male
  Weight: 77.85 kg

DRUGS (10)
  1. DUPIXENT [Suspect]
     Active Substance: DUPILUMAB
     Indication: Pruritus
     Dosage: OTHER FREQUENCY : EVERY 2 OR 3 WEEK;?OTHER ROUTE : INJECTION TO MUSCULAR;?
     Route: 050
     Dates: start: 20190422, end: 20190707
  2. XARELTO [Concomitant]
     Active Substance: RIVAROXABAN
  3. ASPIRIN [Concomitant]
     Active Substance: ASPIRIN
  4. HYDROCORTISONE [Concomitant]
     Active Substance: HYDROCORTISONE
  5. ROSUVASTATIN [Concomitant]
     Active Substance: ROSUVASTATIN
  6. VITAMIN C [Concomitant]
     Active Substance: ASCORBIC ACID
  7. VITAMIN D NOS [Concomitant]
     Active Substance: VITAMIN D NOS
  8. OMEGA 3 [Concomitant]
     Active Substance: CAPSAICIN
  9. COENZYME Q10 [Concomitant]
     Active Substance: DIETARY SUPPLEMENT\UBIDECARENONE
  10. VITAMINS [Concomitant]
     Active Substance: VITAMINS

REACTIONS (2)
  - Cerebrovascular accident [None]
  - Vasculitis [None]

NARRATIVE: CASE EVENT DATE: 20190608
